FAERS Safety Report 19273839 (Version 1)
Quarter: 2021Q2

REPORT INFORMATION
  Report Type: Spontaneous
  Country: US (occurrence: US)
  Receive Date: 20210519
  Receipt Date: 20210519
  Transmission Date: 20210717
  Serious: No
  Sender: FDA-Public Use
  Company Number: None

PATIENT
  Age: 61 Year
  Sex: Male

DRUGS (1)
  1. LEVOFLOXACIN. [Suspect]
     Active Substance: LEVOFLOXACIN
     Indication: INFECTION
     Dates: start: 20210427, end: 20210428

REACTIONS (13)
  - Brugada syndrome [None]
  - Coronary artery disease [None]
  - Nausea [None]
  - Chest pain [None]
  - Ischaemia [None]
  - Hyperhidrosis [None]
  - Pain [None]
  - Electrocardiogram ST segment elevation [None]
  - Palpitations [None]
  - Arteriospasm coronary [None]
  - Chest discomfort [None]
  - Drug hypersensitivity [None]
  - Angina pectoris [None]

NARRATIVE: CASE EVENT DATE: 20210427
